FAERS Safety Report 23601303 (Version 1)
Quarter: 2024Q1

REPORT INFORMATION
  Report Type: Spontaneous
  Country: IT (occurrence: IT)
  Receive Date: 20240306
  Receipt Date: 20240306
  Transmission Date: 20240410
  Serious: Yes (Hospitalization)
  Sender: FDA-Public Use
  Company Number: None

PATIENT
  Age: 72 Year
  Sex: Male

DRUGS (13)
  1. ASPIRIN [Suspect]
     Active Substance: ASPIRIN
     Indication: Myocardial ischaemia
     Dosage: 1 DOSAGE FORM, QD (EX OFFICIO ASSIGNED THERAPY START DATE)
     Route: 048
     Dates: start: 20230101, end: 20230515
  2. BISOPROLOL [Suspect]
     Active Substance: BISOPROLOL\BISOPROLOL FUMARATE
     Indication: Myocardial ischaemia
     Dosage: 1 DOSAGE FORM, QD (EX OFFICIO ASSIGNED THERAPY START DATE)
     Route: 048
     Dates: start: 20230101, end: 20230515
  3. AMIODARONE [Suspect]
     Active Substance: AMIODARONE
     Indication: Myocardial ischaemia
     Dosage: 1 DOSAGE FORM, QD (EX OFFICIO ASSIGNED THERAPY START DATE)
     Route: 048
     Dates: start: 20230101, end: 20230515
  4. CLOPIDOGREL [Suspect]
     Active Substance: CLOPIDOGREL BISULFATE
     Indication: Myocardial ischaemia
     Dosage: 1 DOSAGE FORM, QD (EX OFFICIO ASSIGNED THERAPY START DATE)
     Route: 048
     Dates: start: 20230101, end: 20230515
  5. LASIX [Suspect]
     Active Substance: FUROSEMIDE
     Indication: Myocardial ischaemia
     Dosage: 1 DOSAGE FORM, QD (EX OFFICIO ASSIGNED THERAPY START DATE)
     Route: 048
     Dates: start: 20230101, end: 20230515
  6. LINAGLIPTIN [Concomitant]
     Active Substance: LINAGLIPTIN
     Dosage: UNK
     Route: 065
  7. MOVICOL [Concomitant]
     Active Substance: POLYETHYLENE GLYCOL 3350\POTASSIUM CHLORIDE\SODIUM BICARBONATE\SODIUM CHLORIDE
     Dosage: UNK
     Route: 065
  8. QUETIAPINE [Concomitant]
     Active Substance: QUETIAPINE
     Dosage: UNK
     Route: 065
  9. ATORVASTATIN [Concomitant]
     Active Substance: ATORVASTATIN
     Dosage: UNK
     Route: 065
  10. TAMSULOSIN HYDROCHLORIDE [Concomitant]
     Active Substance: TAMSULOSIN HYDROCHLORIDE
     Dosage: UNK
     Route: 065
  11. PANTOPRAZOLE SODIUM [Concomitant]
     Active Substance: PANTOPRAZOLE SODIUM
     Dosage: UNK
     Route: 065
  12. CITALOPRAM [Concomitant]
     Active Substance: CITALOPRAM HYDROBROMIDE
     Dosage: UNK
     Route: 065
  13. ALLOPURINOL [Concomitant]
     Active Substance: ALLOPURINOL
     Dosage: UNK
     Route: 065

REACTIONS (2)
  - Cardiac failure [Unknown]
  - Product administration interrupted [Unknown]

NARRATIVE: CASE EVENT DATE: 20230515
